FAERS Safety Report 8041466-8 (Version None)
Quarter: 2012Q1

REPORT INFORMATION
  Report Type: 
  Country: None (occurrence: None)
  Receive Date: 20120112
  Receipt Date: 20120109
  Transmission Date: 20120608
  Serious: Yes (Hospitalization)
  Sender: FDA-Public Use
  Company Number: FR-PFIZER INC-2012005438

PATIENT
  Age: 76 Year
  Sex: Female

DRUGS (6)
  1. TRANSIPEG [Concomitant]
     Dosage: 5.9 G, 1 DF, DAILY
  2. LYRICA [Suspect]
     Indication: ARTHRODESIS
     Dosage: 150 MG, 2X/DAY
  3. VALSARTAN  AND HYDROCHLOROTHIAZIDE [Concomitant]
     Dosage: 160MG, 1 DF, 1X/DAY
  4. ACETAMINOPHEN AND CODEINE PHOSPHATE [Concomitant]
     Dosage: 6 DF, 1X/DAY
  5. LEXOMIL [Concomitant]
     Dosage: UNK DF, UNK
  6. NEXIUM [Concomitant]
     Dosage: 20 MG, DAILY

REACTIONS (4)
  - VERTIGO [None]
  - ATAXIA [None]
  - CEREBELLAR SYNDROME [None]
  - CEREBROVASCULAR ACCIDENT [None]
